FAERS Safety Report 8219366-X (Version None)
Quarter: 2012Q1

REPORT INFORMATION
  Report Type: 
  Country: None (occurrence: None)
  Receive Date: 20120319
  Receipt Date: 20120305
  Transmission Date: 20120608
  Serious: Yes (Disabling, Other)
  Sender: FDA-Public Use
  Company Number: BD-ASTELLAS-2012US001524

PATIENT
  Age: 41 Year
  Sex: Male
  Weight: 49 kg

DRUGS (7)
  1. AMOXI [Concomitant]
     Indication: PRODUCT USED FOR UNKNOWN INDICATION
     Dosage: UNK
     Route: 065
     Dates: start: 20110810, end: 20110817
  2. FOLIC ACID [Concomitant]
     Indication: PRODUCT USED FOR UNKNOWN INDICATION
     Dosage: UNK
     Route: 065
  3. ALBENDAZOLE [Concomitant]
     Indication: PRODUCT USED FOR UNKNOWN INDICATION
     Dosage: UNK
     Route: 065
     Dates: start: 20110810
  4. METOCLOPRAMIDE [Concomitant]
     Indication: NAUSEA
     Dosage: UNK
     Route: 065
     Dates: start: 20110818, end: 20110820
  5. AMBISOME [Suspect]
     Indication: VISCERAL LEISHMANIASIS
     Dosage: 126 MG, UNKNOWN/D
     Route: 065
     Dates: start: 20110810
  6. FERROUS SULFATE TAB [Concomitant]
     Indication: PRODUCT USED FOR UNKNOWN INDICATION
     Dosage: UNK
     Route: 065
     Dates: start: 20110810, end: 20110910
  7. ACETAMINOPHEN [Concomitant]
     Indication: PRODUCT USED FOR UNKNOWN INDICATION
     Dosage: UNK
     Route: 065
     Dates: start: 20110810, end: 20110820

REACTIONS (1)
  - RHABDOMYOLYSIS [None]
